FAERS Safety Report 19299512 (Version 1)
Quarter: 2021Q2

REPORT INFORMATION
  Report Type: Spontaneous
  Country: US (occurrence: US)
  Receive Date: 20210524
  Receipt Date: 20210524
  Transmission Date: 20210717
  Serious: Yes (Hospitalization)
  Sender: FDA-Public Use
  Company Number: None

PATIENT
  Age: 72 Year
  Sex: Male

DRUGS (3)
  1. COSENTYX [Suspect]
     Active Substance: SECUKINUMAB
     Indication: PSORIATIC ARTHROPATHY
     Dosage: ?          OTHER FREQUENCY:EVERY FOUR WEEKS;?
     Route: 058
     Dates: start: 20210115, end: 20210515
  2. BUDESONIDE, FLUTICASONE, LOSARTAN POTASSIUM, LEVOTHYROXINE [Concomitant]
  3. ALLOPURINOL, ATORVASTATIN [Concomitant]

REACTIONS (4)
  - Gastritis [None]
  - Arthralgia [None]
  - Colitis ulcerative [None]
  - Musculoskeletal stiffness [None]

NARRATIVE: CASE EVENT DATE: 20210121
